FAERS Safety Report 9929724 (Version 2)
Quarter: 2014Q1

REPORT INFORMATION
  Report Type: Spontaneous
  Country: GB (occurrence: GB)
  Receive Date: 20140227
  Receipt Date: 20140227
  Transmission Date: 20141002
  Serious: Yes (Other)
  Sender: FDA-Public Use
  Company Number: PHFR2013GB006394

PATIENT
  Age: 39 Year
  Sex: Male

DRUGS (2)
  1. CLOZARIL [Suspect]
     Dosage: UNK
     Route: 048
     Dates: start: 20130225
  2. CLOZARIL [Suspect]
     Dosage: 250 MG, DAILY
     Route: 048

REACTIONS (2)
  - Schizophrenia [Recovered/Resolved]
  - Differential white blood cell count abnormal [Recovered/Resolved]
